FAERS Safety Report 9511521 (Version 1)
Quarter: 2013Q3

REPORT INFORMATION
  Report Type: Spontaneous
  Country: US (occurrence: None)
  Receive Date: 20130906
  Receipt Date: 20130906
  Transmission Date: 20140515
  Serious: Yes (Hospitalization, Other)
  Sender: FDA-Public Use
  Company Number: USA/USA/13/0034384

PATIENT
  Age: 54 Year
  Sex: Female

DRUGS (7)
  1. IBUPROFEN [Suspect]
     Indication: PRODUCT USED FOR UNKNOWN INDICATION
  2. GLIMEPIRIDE [Suspect]
     Indication: PRODUCT USED FOR UNKNOWN INDICATION
  3. ENALAPRIL [Suspect]
     Indication: PRODUCT USED FOR UNKNOWN INDICATION
  4. METFORMIN (METFORMIN) [Suspect]
     Indication: PRODUCT USED FOR UNKNOWN INDICATION
  5. NIMESULIDE [Suspect]
     Indication: PRODUCT USED FOR UNKNOWN INDICATION
  6. IMIPRAMINE [Suspect]
     Indication: PRODUCT USED FOR UNKNOWN INDICATION
  7. ASPIRIN (ACETYLSALICYLIC ACID) [Suspect]
     Indication: PAIN

REACTIONS (51)
  - Lactic acidosis [None]
  - Renal failure acute [None]
  - Abdominal pain [None]
  - Vomiting [None]
  - Confusional state [None]
  - Malaise [None]
  - Asthenia [None]
  - Chills [None]
  - Skin warm [None]
  - Hypophagia [None]
  - Dyspnoea [None]
  - Unresponsive to stimuli [None]
  - Moaning [None]
  - Heart rate decreased [None]
  - Respiratory rate increased [None]
  - Incoherent [None]
  - Discomfort [None]
  - Agitation [None]
  - Disorientation [None]
  - Pupillary reflex impaired [None]
  - Atrial fibrillation [None]
  - Electrocardiogram ST segment depression [None]
  - Mean cell haemoglobin concentration decreased [None]
  - Activated partial thromboplastin time prolonged [None]
  - Prothrombin time prolonged [None]
  - Blood sodium increased [None]
  - Blood potassium increased [None]
  - Blood chloride decreased [None]
  - Carbon dioxide decreased [None]
  - Blood glucose increased [None]
  - Protein total decreased [None]
  - Blood albumin decreased [None]
  - Globulins decreased [None]
  - Blood calcium decreased [None]
  - Hyperphosphataemia [None]
  - Blood magnesium increased [None]
  - Blood lactate dehydrogenase increased [None]
  - Troponin T increased [None]
  - Blood creatine phosphokinase increased [None]
  - Blood osmolarity increased [None]
  - Red blood cell burr cells present [None]
  - Leukocytosis [None]
  - Shift to the left [None]
  - Hypochromasia [None]
  - Sepsis [None]
  - Cardiogenic shock [None]
  - Pancreatitis acute [None]
  - Cardiorenal syndrome [None]
  - Rhabdomyolysis [None]
  - Metabolic acidosis [None]
  - Continuous haemodiafiltration [None]
